FAERS Safety Report 9822453 (Version 2)
Quarter: 2014Q1

REPORT INFORMATION
  Report Type: Spontaneous
  Country: US (occurrence: US)
  Receive Date: 20140116
  Receipt Date: 20140116
  Transmission Date: 20141002
  Serious: Yes (Hospitalization, Other)
  Sender: FDA-Public Use
  Company Number: US-BAXTER-2014BAX000699

PATIENT
  Sex: Female

DRUGS (1)
  1. DIANEAL LOW CALCIUM [Suspect]
     Indication: PERITONEAL DIALYSIS
     Route: 033
     Dates: start: 201202, end: 20140101

REACTIONS (5)
  - Immunodeficiency [Unknown]
  - Clostridium difficile infection [Recovering/Resolving]
  - Peritonitis bacterial [Not Recovered/Not Resolved]
  - Malnutrition [Not Recovered/Not Resolved]
  - Constipation [Recovered/Resolved]
